FAERS Safety Report 16526268 (Version 1)
Quarter: 2019Q3

REPORT INFORMATION
  Report Type: Spontaneous
  Country: US (occurrence: US)
  Receive Date: 20190703
  Receipt Date: 20190703
  Transmission Date: 20191004
  Serious: Yes (Life-Threatening, Disabling, Other)
  Sender: FDA-Public Use
  Company Number: US-SA-2019SA180181

PATIENT
  Age: 54 Year
  Sex: Female
  Weight: 102.22 kg

DRUGS (1)
  1. FABRAZYME [Suspect]
     Active Substance: AGALSIDASE BETA
     Indication: FABRY^S DISEASE
     Dosage: UNK
     Route: 042
     Dates: start: 2012

REACTIONS (5)
  - Coronary artery occlusion [Recovering/Resolving]
  - Medical induction of coma [Recovering/Resolving]
  - Cerebrovascular accident [Recovering/Resolving]
  - Gait inability [Unknown]
  - Treatment noncompliance [Recovering/Resolving]

NARRATIVE: CASE EVENT DATE: 20190220
